FAERS Safety Report 9616192 (Version 1)
Quarter: 2013Q4

REPORT INFORMATION
  Report Type: Spontaneous
  Country: US (occurrence: US)
  Receive Date: 20131011
  Receipt Date: 20131011
  Transmission Date: 20140711
  Serious: No
  Sender: FDA-Public Use
  Company Number: US-BAYER-2013-120504

PATIENT
  Age: 71 Year
  Sex: Male

DRUGS (10)
  1. NEXAVAR [Suspect]
     Indication: HEPATOCELLULAR CARCINOMA
     Dosage: 200 MG, BID
     Route: 048
     Dates: start: 20130927, end: 20131001
  2. CELEBREX [Concomitant]
  3. VALIUM [Concomitant]
     Dosage: UNK
  4. ERGOCALCIFEROL [Concomitant]
  5. VITAMIN D2 [Concomitant]
  6. FLONASE [Concomitant]
  7. FLOMAX MR [Concomitant]
  8. TOPROL XL [Concomitant]
     Dosage: 25 MG, UNK
  9. PRILOSEC [Concomitant]
     Dosage: 20 MG, UNK
  10. VITAMIN B12 [Concomitant]

REACTIONS (2)
  - Muscle spasms [Recovering/Resolving]
  - Abdominal distension [Recovering/Resolving]
